FAERS Safety Report 4897469-5 (Version None)
Quarter: 2006Q1

REPORT INFORMATION
  Report Type: 
  Country: None (occurrence: None)
  Receive Date: 20060130
  Receipt Date: 20060130
  Transmission Date: 20060701
  Serious: Yes (Other)
  Sender: FDA-Public Use
  Company Number: None

PATIENT
  Sex: Female
  Weight: 81.6475 kg

DRUGS (1)
  1. TELITHROMYCIN STANDARD AVENTIS [Suspect]
     Indication: SINUSITIS
     Dosage: STANDARD QD PO
     Route: 048
     Dates: start: 20060103, end: 20060107

REACTIONS (3)
  - DIPLOPIA [None]
  - IMPAIRED DRIVING ABILITY [None]
  - VISION BLURRED [None]
